FAERS Safety Report 7739555-8 (Version None)
Quarter: 2011Q3

REPORT INFORMATION
  Report Type: 
  Country: None (occurrence: None)
  Receive Date: 20110909
  Receipt Date: 20110907
  Transmission Date: 20111222
  Serious: Yes (Hospitalization, Other)
  Sender: FDA-Public Use
  Company Number: CH-PFIZER INC-2011209029

PATIENT
  Age: 49 Year
  Sex: Female

DRUGS (2)
  1. IXEMPRA KIT [Suspect]
     Indication: BREAST CANCER
     Dosage: 40 MG, MONTHLY
     Route: 051
     Dates: start: 20110428, end: 20110711
  2. CLINDAMYCIN HCL [Suspect]
     Indication: OSTEOMYELITIS
     Dosage: UNK
     Dates: end: 20110701

REACTIONS (9)
  - COLITIS ULCERATIVE [None]
  - GASTROENTERITIS [None]
  - PANCYTOPENIA [None]
  - CLOSTRIDIUM DIFFICILE COLITIS [None]
  - RESPIRATORY FAILURE [None]
  - ATRIAL FIBRILLATION [None]
  - SEPTIC SHOCK [None]
  - ILEUS PARALYTIC [None]
  - PLEURAL EFFUSION [None]
